FAERS Safety Report 26066795 (Version 1)
Quarter: 2025Q4

REPORT INFORMATION
  Report Type: Spontaneous
  Country: US (occurrence: US)
  Receive Date: 20251119
  Receipt Date: 20251119
  Transmission Date: 20260117
  Serious: No
  Sender: SANDOZ
  Company Number: US-SANDOZ-SDZ2024US108396

PATIENT
  Age: 71 Year
  Sex: Female
  Weight: 61.2 kg

DRUGS (2)
  1. COMBIPATCH [Suspect]
     Active Substance: ESTRADIOL\NORETHINDRONE ACETATE
     Indication: Blood cholesterol increased
     Dosage: 0.05/0.25 MG EVERY 4 DAYS FOR ALTERNATE TWO  WEEKS;
     Route: 062
  2. DOTTI [Suspect]
     Active Substance: ESTRADIOL
     Indication: Blood cholesterol increased
     Dosage: 0.05 MG,EVERY 4 DAYS FOR ALTERNATE TWO  WEEKS;
     Route: 062

REACTIONS (2)
  - Withdrawal bleed [Not Recovered/Not Resolved]
  - Off label use [Not Recovered/Not Resolved]
